FAERS Safety Report 23962180 (Version 3)
Quarter: 2024Q2

REPORT INFORMATION
  Report Type: Report from Study
  Country: AU (occurrence: AU)
  Receive Date: 20240611
  Receipt Date: 20240626
  Transmission Date: 20240716
  Serious: Yes (Other)
  Sender: FDA-Public Use
  Company Number: AU-ROCHE-3473527

PATIENT
  Age: 71 Year
  Sex: Male
  Weight: 85.0 kg

DRUGS (2)
  1. ZELBORAF [Suspect]
     Active Substance: VEMURAFENIB
     Indication: Craniopharyngioma
     Dosage: DAY 1 - DAY 28
     Route: 048
     Dates: start: 20240110, end: 20240228
  2. COTELLIC [Suspect]
     Active Substance: COBIMETINIB
     Indication: Craniopharyngioma
     Dosage: DAY 1- DAY 21
     Route: 048
     Dates: start: 20240110, end: 20240228

REACTIONS (4)
  - Lethargy [Recovered/Resolved]
  - Diarrhoea [Recovered/Resolved]
  - Sensitive skin [Recovered/Resolved]
  - Off label use [Unknown]

NARRATIVE: CASE EVENT DATE: 20240118
